FAERS Safety Report 25627201 (Version 1)
Quarter: 2025Q3

REPORT INFORMATION
  Report Type: Spontaneous
  Country: EU (occurrence: EU)
  Receive Date: 20250731
  Receipt Date: 20250731
  Transmission Date: 20251021
  Serious: Yes (Death, Hospitalization, Other)
  Sender: CELLTRION
  Company Number: EU-PFM-2025-02108

PATIENT

DRUGS (14)
  1. TRASTUZUMAB [Suspect]
     Active Substance: TRASTUZUMAB
     Indication: Breast cancer metastatic
     Route: 065
     Dates: start: 202003
  2. TRASTUZUMAB [Suspect]
     Active Substance: TRASTUZUMAB
     Route: 065
     Dates: start: 202102
  3. TRASTUZUMAB [Suspect]
     Active Substance: TRASTUZUMAB
     Route: 065
     Dates: end: 201805
  4. TRASTUZUMAB [Suspect]
     Active Substance: TRASTUZUMAB
     Dosage: UNK, QWK
     Route: 065
  5. VINORELBINE TARTRATE [Suspect]
     Active Substance: VINORELBINE TARTRATE
     Indication: Breast cancer
     Route: 048
     Dates: start: 202003
  6. GEMCITABINE [Suspect]
     Active Substance: GEMCITABINE
     Indication: Breast cancer
     Route: 065
     Dates: start: 202102
  7. PERTUZUMAB [Suspect]
     Active Substance: PERTUZUMAB
     Indication: Product used for unknown indication
     Route: 065
     Dates: end: 201805
  8. LETROZOLE [Concomitant]
     Active Substance: LETROZOLE
  9. CARBOPLATIN [Concomitant]
     Active Substance: CARBOPLATIN
  10. PACLITAXEL [Concomitant]
     Active Substance: PACLITAXEL
     Dosage: UNK, QWK
  11. DOCETAXEL [Concomitant]
     Active Substance: DOCETAXEL
     Dates: start: 201805
  12. ADO-TRASTUZUMAB EMTANSINE [Concomitant]
     Active Substance: ADO-TRASTUZUMAB EMTANSINE
     Dates: start: 2018
  13. VINORELBINE TARTRATE [Concomitant]
     Active Substance: VINORELBINE TARTRATE
     Route: 048
     Dates: start: 202003
  14. GEMCITABINE HYDROCHLORIDE [Concomitant]
     Active Substance: GEMCITABINE HYDROCHLORIDE
     Dates: start: 202102

REACTIONS (6)
  - Breast cancer metastatic [Fatal]
  - Thrombotic thrombocytopenic purpura [Unknown]
  - Hepatomegaly [Unknown]
  - Cardiac failure acute [Recovering/Resolving]
  - Oedema [Unknown]
  - Off label use [Unknown]
